FAERS Safety Report 4731607-X (Version None)
Quarter: 2005Q3

REPORT INFORMATION
  Report Type: 
  Country: None (occurrence: None)
  Receive Date: 20050719
  Receipt Date: 20050203
  Transmission Date: 20060218
  Serious: Yes (Hospitalization)
  Sender: FDA-Public Use
  Company Number: 2005BI002508

PATIENT
  Age: 40 Year
  Sex: Female
  Weight: 119.7496 kg

DRUGS (2)
  1. AVONEX [Suspect]
     Indication: MULTIPLE SCLEROSIS
     Dosage: 30 UG;QW;IM
     Route: 030
     Dates: start: 20011231, end: 20030801
  2. AVONEX [Suspect]
     Indication: MULTIPLE SCLEROSIS
     Dosage: 30 UG;QW;IM
     Route: 030
     Dates: start: 20030801

REACTIONS (6)
  - AMNESIA [None]
  - CHEST DISCOMFORT [None]
  - CONVULSION [None]
  - DYSPEPSIA [None]
  - SYNCOPE [None]
  - TONGUE INJURY [None]
